FAERS Safety Report 16538537 (Version 2)
Quarter: 2019Q3

REPORT INFORMATION
  Report Type: Report from Study
  Country: IT (occurrence: IT)
  Receive Date: 20190708
  Receipt Date: 20190715
  Transmission Date: 20191004
  Serious: Yes (Other)
  Sender: FDA-Public Use
  Company Number: IT-ROCHE-2349570

PATIENT
  Age: 60 Year
  Sex: Male

DRUGS (6)
  1. AKINETON [Suspect]
     Active Substance: BIPERIDEN HYDROCHLORIDE
     Indication: PRODUCT ADMINISTRATION ERROR
     Route: 048
     Dates: start: 20190602, end: 20190602
  2. KEPPRA [Suspect]
     Active Substance: LEVETIRACETAM
     Indication: EPILEPSY
     Route: 048
     Dates: start: 20150101, end: 20190602
  3. CLOZAPINE. [Suspect]
     Active Substance: CLOZAPINE
     Indication: PRODUCT ADMINISTRATION ERROR
     Route: 048
     Dates: start: 20190602, end: 20190602
  4. CLONAZEPAM. [Suspect]
     Active Substance: CLONAZEPAM
     Indication: PRODUCT ADMINISTRATION ERROR
     Route: 048
     Dates: start: 20190602, end: 20190602
  5. VALPROATE SODIUM;VALPROIC ACID [Suspect]
     Active Substance: VALPROIC ACID
     Indication: EPILEPSY
     Route: 048
     Dates: start: 20150101, end: 20190602
  6. VIMPAT [Suspect]
     Active Substance: LACOSAMIDE
     Indication: EPILEPSY
     Route: 048
     Dates: start: 20150101, end: 20190602

REACTIONS (2)
  - Product administration error [Unknown]
  - Sopor [Recovering/Resolving]

NARRATIVE: CASE EVENT DATE: 20190602
